FAERS Safety Report 10663048 (Version 5)
Quarter: 2015Q3

REPORT INFORMATION
  Report Type: Spontaneous
  Country: US (occurrence: US)
  Receive Date: 20141218
  Receipt Date: 20150710
  Transmission Date: 20151125
  Serious: Yes (Other)
  Sender: FDA-Public Use
  Company Number: US-PFIZER INC-2014346732

PATIENT
  Age: 70 Year
  Sex: Female

DRUGS (71)
  1. NIFEDIPINE. [Suspect]
     Active Substance: NIFEDIPINE
     Dosage: UNK
  2. MORPHINE SULFATE. [Suspect]
     Active Substance: MORPHINE SULFATE
     Dosage: UNK
  3. ZANTAC [Suspect]
     Active Substance: RANITIDINE HYDROCHLORIDE
     Dosage: UNK
  4. LYSINE [Concomitant]
     Active Substance: LYSINE
     Indication: HERPES VIRUS INFECTION
  5. ACETAMINOPHEN. [Concomitant]
     Active Substance: ACETAMINOPHEN
     Indication: PAIN
     Dosage: UNK
  6. UBIQUINOL [Concomitant]
     Indication: GENERAL PHYSICAL HEALTH DETERIORATION
     Dosage: 100 MG, 1X/DAY
     Dates: start: 2009
  7. INSULIN [Concomitant]
     Active Substance: INSULIN NOS
     Dosage: UNK
  8. FLAXSEED [Concomitant]
     Active Substance: FLAX SEED
     Indication: ILL-DEFINED DISORDER
     Dosage: UNK
  9. PROBIOTIC [Concomitant]
     Active Substance: PROBIOTICS NOS
     Indication: BACTERIAL INFECTION
  10. IBUPROFEN. [Suspect]
     Active Substance: IBUPROFEN
     Dosage: UNK
  11. ESTROGENS CONJUGATED [Suspect]
     Active Substance: ESTROGENS, CONJUGATED
     Dosage: UNK
  12. GLIBENCLAMIDE [Suspect]
     Active Substance: GLYBURIDE
     Dosage: UNK
  13. ACIPHEX [Suspect]
     Active Substance: RABEPRAZOLE SODIUM
     Dosage: UNK
  14. BROMELAIN [Concomitant]
     Active Substance: BROMELAINS
     Indication: MULTIPLE ALLERGIES
     Dosage: 500 MG, UNK
     Dates: start: 2012
  15. QUERCETIN [Concomitant]
     Active Substance: QUERCETIN
     Indication: INFLAMMATION
  16. NAC [Concomitant]
     Indication: LIVER DISORDER
  17. PERLUXAN (HOPS) [Concomitant]
     Indication: BONE DISORDER
     Dosage: 500 MG, 2X/DAY
     Dates: start: 2009
  18. LUTEIN [Concomitant]
     Active Substance: LUTEIN
     Indication: EYE DISORDER
     Dosage: 23 MG, DAILY
     Dates: start: 2014
  19. FISH OIL [Concomitant]
     Active Substance: FISH OIL
     Indication: INFLAMMATION
     Dosage: 1000 MG, DAILY
     Dates: start: 2014
  20. VITAMIN C [Concomitant]
     Active Substance: ASCORBIC ACID
     Indication: GENERAL PHYSICAL HEALTH DETERIORATION
     Dosage: 500 MG, 2X/DAY
     Dates: start: 2002
  21. TURMERIC [Concomitant]
     Active Substance: TURMERIC
     Indication: GENERAL PHYSICAL CONDITION
     Dosage: 500 MG, 2X/DAY
     Dates: start: 2009
  22. NOVOLIN N [Concomitant]
     Active Substance: INSULIN HUMAN
     Indication: DIABETES MELLITUS
     Dosage: 15-24 UNITS, SLIDING SCALE, 1-2 TIMES DAILY
  23. PROBIOTIC [Concomitant]
     Active Substance: PROBIOTICS NOS
     Indication: GENERAL PHYSICAL HEALTH DETERIORATION
     Dosage: 20 BILLION CFU DAILY
     Dates: start: 1999
  24. LUTEIN ZEAXANTHIN [Concomitant]
     Indication: EYE DISORDER
     Dosage: 23 MG, 1X/DAY
     Dates: start: 2014
  25. PRILOSEC [Suspect]
     Active Substance: OMEPRAZOLE MAGNESIUM
     Indication: GASTRIC DISORDER
     Dosage: UNK
     Route: 048
     Dates: start: 2002
  26. PERCOCET [Suspect]
     Active Substance: ACETAMINOPHEN\OXYCODONE HYDROCHLORIDE
     Dosage: UNK
  27. FLAXSEED [Concomitant]
     Active Substance: FLAX SEED
     Indication: SUPPLEMENTATION THERAPY
     Dosage: UNK
  28. QUERCETIN [Concomitant]
     Active Substance: QUERCETIN
     Indication: MULTIPLE ALLERGIES
     Dosage: 650 MG, DAILY
     Dates: start: 2009
  29. NAC [Concomitant]
     Indication: DIABETES MELLITUS
     Dosage: 600 MG, DAILY
     Dates: start: 2009
  30. BIOTIN [Concomitant]
     Active Substance: BIOTIN
     Indication: DIABETES MELLITUS
     Dosage: 500 MG, DAILY
     Dates: start: 2012
  31. MAGNESIUM [Concomitant]
     Active Substance: MAGNESIUM
     Indication: GENERAL PHYSICAL HEALTH DETERIORATION
     Dosage: 600 MG, DAILY
     Dates: start: 1998
  32. CELEBREX [Suspect]
     Active Substance: CELECOXIB
     Dosage: UNK
     Route: 048
  33. BENADRYL [Suspect]
     Active Substance: DIPHENHYDRAMINE HYDROCHLORIDE
     Dosage: UNK
  34. VITAMIN B COMPLEX [Concomitant]
     Active Substance: CYANOCOBALAMIN\DEXPANTHENOL\NIACINAMIDE\PYRIDOXINE HYDROCHLORIDE\RIBOFLAVIN 5^-PHOSPHATE SODIUM\THIAMINE HYDROCHLORIDE\VITAMIN B COMPLEX
     Indication: GENERAL PHYSICAL HEALTH DETERIORATION
     Dosage: 1 DF, DAILY
     Dates: start: 2002
  35. GREEN COFFEE [Concomitant]
     Indication: DIABETES MELLITUS
     Dosage: 600 MG, UNK
  36. TURMIC [Concomitant]
     Indication: GENERAL PHYSICAL HEALTH DETERIORATION
     Dosage: 500 MG, 2X/DAY
     Dates: start: 2009
  37. DGL [Concomitant]
     Indication: GASTRIC DISORDER
     Dosage: 750 MG TABLETS 1-2 PER DAY
     Dates: start: 2010
  38. NEXIUM 24HR [Suspect]
     Active Substance: ESOMEPRAZOLE MAGNESIUM
     Indication: HIATUS HERNIA
     Dosage: 40 MG, UNK
     Route: 048
     Dates: start: 20141205
  39. METFORMIN [Suspect]
     Active Substance: METFORMIN HYDROCHLORIDE
     Dosage: UNK
  40. LEVAQUIN [Suspect]
     Active Substance: LEVOFLOXACIN
     Dosage: UNK
  41. A FORM OF ESTROGEN [Suspect]
     Active Substance: UNSPECIFIED INGREDIENT
     Dosage: UNK
  42. LYSINE [Concomitant]
     Active Substance: LYSINE
     Indication: BONE DISORDER
     Dosage: 600 MG, DAILY
     Dates: start: 2002
  43. PANTETHINE [Concomitant]
     Active Substance: PANTETHINE
     Indication: BLOOD CHOLESTEROL ABNORMAL
     Dosage: 300 MG, 2X/DAY
     Dates: start: 2009
  44. EXCEDRIN [Concomitant]
     Active Substance: ACETAMINOPHEN\ASPIRIN\CAFFEINE
     Indication: PAIN
     Dosage: UNK
  45. TUMS [Concomitant]
     Active Substance: CALCIUM CARBONATE
     Indication: GASTRIC DISORDER
     Dosage: UNK
     Dates: start: 2014
  46. VITAMIN B1 [Concomitant]
     Active Substance: THIAMINE HYDROCHLORIDE
     Indication: NEUROPATHY PERIPHERAL
     Dosage: UNK
     Dates: start: 2004
  47. NEXIUM [Suspect]
     Active Substance: ESOMEPRAZOLE MAGNESIUM
     Indication: GASTROOESOPHAGEAL REFLUX DISEASE
     Dosage: 20 MG, 2X/DAY
     Route: 048
  48. METHYLSULFONYLMETHANE [Suspect]
     Active Substance: DIMETHYL SULFONE
     Dosage: UNK
  49. COZAAR [Suspect]
     Active Substance: LOSARTAN POTASSIUM
     Dosage: UNK
  50. NEXIUM [Suspect]
     Active Substance: ESOMEPRAZOLE MAGNESIUM
     Indication: HIATUS HERNIA
     Dosage: 40 MG, DAILY
     Route: 048
     Dates: start: 2004, end: 20141205
  51. NEXIUM 24HR [Suspect]
     Active Substance: ESOMEPRAZOLE MAGNESIUM
     Indication: GASTROOESOPHAGEAL REFLUX DISEASE
     Dosage: 2 DF, 2X/DAY
     Route: 048
  52. LISINOPRIL. [Suspect]
     Active Substance: LISINOPRIL
     Indication: BLOOD PRESSURE ABNORMAL
     Dosage: UNK
     Route: 048
  53. VITAMIN B 1-6-12 [Suspect]
     Active Substance: CYANOCOBALAMIN\PYRIDOXINE\THIAMINE
     Indication: GENERAL PHYSICAL HEALTH DETERIORATION
     Dosage: 2000 MG, DAILY
     Dates: start: 2002
  54. LANTUS [Suspect]
     Active Substance: INSULIN GLARGINE
     Dosage: UNK
  55. PEPCID [Suspect]
     Active Substance: FAMOTIDINE
     Dosage: UNK
  56. CODEINE [Suspect]
     Active Substance: CODEINE
     Dosage: UNK
  57. CARNOSINE [Concomitant]
     Active Substance: CARNOSINE
     Indication: CEREBRAL DISORDER
     Dosage: 500 MG, DAILY
     Dates: start: 2012
  58. BERBERINE [Concomitant]
     Active Substance: BERBERINE
     Indication: DIABETES MELLITUS
     Dosage: 1000 MG, DAILY
  59. BIOTIN [Concomitant]
     Active Substance: BIOTIN
     Indication: HAIR DISORDER
  60. VITAMIN D3 [Concomitant]
     Active Substance: CHOLECALCIFEROL
     Indication: GENERAL PHYSICAL HEALTH DETERIORATION
     Dosage: 7000 MG, DAILY
     Dates: start: 2002
  61. ZINC [Concomitant]
     Active Substance: ZINC\ZINC CHLORIDE
     Indication: GENERAL PHYSICAL HEALTH DETERIORATION
     Dosage: 50 MG, DAILY
     Dates: start: 2009
  62. PREVACID [Suspect]
     Active Substance: LANSOPRAZOLE
     Dosage: UNK
  63. HUMALOG [Suspect]
     Active Substance: INSULIN LISPRO
     Dosage: UNK
  64. ZELNORM [Suspect]
     Active Substance: TEGASEROD MALEATE
     Dosage: UNK
  65. CITRAFEN [Suspect]
     Active Substance: TIQUIZIUM BROMIDE
     Dosage: UNK
  66. CHROMIUM [Concomitant]
     Active Substance: CHROMIC CHLORIDE\CHROMIUM
     Indication: DIABETES MELLITUS
     Dosage: 400 MG, UNK
  67. VITAMIN K [Concomitant]
     Active Substance: PHYTONADIONE
     Indication: GENERAL PHYSICAL HEALTH DETERIORATION
     Dosage: 150 MG, DAILY
     Dates: start: 2002
  68. POTASSIUM [Concomitant]
     Active Substance: POTASSIUM
     Indication: GENERAL PHYSICAL HEALTH DETERIORATION
     Dosage: 100 MG, 2X/DAY
     Dates: start: 2002
  69. HYDROCHLOROTHIAZIDE. [Concomitant]
     Active Substance: HYDROCHLOROTHIAZIDE
     Dosage: UNK
  70. GINGER ROOT [Concomitant]
     Indication: ARTHRITIS
     Dosage: 540 MG, 1X/DAY
     Dates: start: 2012
  71. BLADDER WRACK [Concomitant]
     Indication: IODINE DEFICIENCY
     Dosage: 500 MG, 1X/DAY
     Dates: start: 2009

REACTIONS (18)
  - Condition aggravated [Unknown]
  - Bladder disorder [Recovered/Resolved]
  - Arthritis [Unknown]
  - Diabetes mellitus [Unknown]
  - Drug hypersensitivity [Unknown]
  - Cystitis [Unknown]
  - Blood magnesium decreased [Unknown]
  - Product physical issue [Unknown]
  - Intentional product misuse [Unknown]
  - Femur fracture [Unknown]
  - Barrett^s oesophagus [Unknown]
  - Sleep disorder due to a general medical condition [Unknown]
  - Blood zinc decreased [Unknown]
  - Micturition urgency [Unknown]
  - Rash macular [Unknown]
  - Fatigue [Unknown]
  - Abdominal discomfort [Recovered/Resolved]
  - Drug ineffective [Unknown]

NARRATIVE: CASE EVENT DATE: 2002
